FAERS Safety Report 9326979 (Version 2)
Quarter: 2014Q2

REPORT INFORMATION
  Report Type: Spontaneous
  Country: US (occurrence: US)
  Receive Date: 20130604
  Receipt Date: 20140402
  Transmission Date: 20141212
  Serious: No
  Sender: FDA-Public Use
  Company Number: US-AMGEN-USASP2013038872

PATIENT
  Age: 63 Year
  Sex: Female

DRUGS (17)
  1. ENBREL [Suspect]
     Indication: ARTHRITIS
     Dosage: UNK
     Route: 065
     Dates: start: 20130523
  2. TEDUGLUTIDE [Suspect]
     Indication: SHORT-BOWEL SYNDROME
     Dosage: 0.365 ML, QD
     Route: 058
     Dates: start: 20130518
  3. ANAESTHETICS, LOCAL [Suspect]
     Indication: MUSCULOSKELETAL STIFFNESS
     Dosage: UNK
     Route: 065
  4. METOPROLOL [Concomitant]
     Dosage: UNK
  5. SPIRONOLACTONE [Concomitant]
     Dosage: UNK
  6. FLEXERIL                           /00428402/ [Concomitant]
     Dosage: UNK
  7. LOMOTIL [Concomitant]
     Dosage: UNK
  8. PREVACID [Concomitant]
     Dosage: UNK
     Dates: start: 201305
  9. TOPAMAX [Concomitant]
     Dosage: UNK
     Dates: start: 201206
  10. BENADRYL                           /00000402/ [Concomitant]
     Dosage: UNK
  11. FLONASE [Concomitant]
     Dosage: UNK
  12. VOLTAREN EMULGEL [Concomitant]
     Dosage: UNK
  13. NORMAL SALINE [Concomitant]
     Dosage: UNK
     Dates: start: 201204
  14. IMODIUM [Concomitant]
     Dosage: UNK
  15. AMITRIPTYLINE [Concomitant]
     Dosage: UNK
  16. LEVOTHYROXINE [Concomitant]
     Dosage: UNK
  17. KETOCONAZOLE [Concomitant]
     Dosage: UNK

REACTIONS (3)
  - Dizziness [Recovered/Resolved]
  - Weight increased [Unknown]
  - Gait disturbance [Unknown]
